FAERS Safety Report 23906748 (Version 2)
Quarter: 2024Q2

REPORT INFORMATION
  Report Type: Spontaneous
  Country: US (occurrence: US)
  Receive Date: 20240528
  Receipt Date: 20240531
  Transmission Date: 20240715
  Serious: Yes (Other)
  Sender: FDA-Public Use
  Company Number: US-LEO Pharma-370619

PATIENT
  Age: 57 Year
  Sex: Female

DRUGS (1)
  1. ADBRY [Suspect]
     Active Substance: TRALOKINUMAB-LDRM
     Indication: Dermatitis atopic
     Dosage: STATES THIS WAS HER ONLY DOSES OF ADBRY, ONLY RECEIVED LOADING (PATIENT SAID ^2 SHOTS^).
     Dates: start: 20240326, end: 20240326

REACTIONS (5)
  - Product administered at inappropriate site [Unknown]
  - Eye disorder [Not Recovered/Not Resolved]
  - Retinal injury [Not Recovered/Not Resolved]
  - Hypersensitivity [Unknown]
  - Binocular visual dysfunction [Not Recovered/Not Resolved]
